FAERS Safety Report 10578972 (Version 1)
Quarter: 2014Q4

REPORT INFORMATION
  Report Type: Report from Study
  Country: JP (occurrence: JP)
  Receive Date: 20141112
  Receipt Date: 20141112
  Transmission Date: 20150529
  Serious: Yes (Death)
  Sender: FDA-Public Use
  Company Number: JP-SA-2014SA153388

PATIENT
  Age: 71 Year
  Sex: Male

DRUGS (5)
  1. ESTROGENS CONJUGATED/METHYLTESTOSTERONE [Concomitant]
     Indication: PROSTATE CANCER
  2. ESTRAMUSTINE [Concomitant]
     Active Substance: ESTRAMUSTINE
     Indication: PROSTATE CANCER
     Dosage: 560 MG/DAY, BID FROM DAY 1 TO DAY 5 OF 21 DAY CYCLE
  3. THERAPEUTIC RADIOPHARMACEUTICALS [Concomitant]
     Active Substance: RADIATION THERAPY
     Indication: PROSTATE CANCER
  4. HYDROCORTISONE. [Concomitant]
     Active Substance: HYDROCORTISONE
     Indication: PROSTATE CANCER
     Dosage: 40 MG/DAY, BID FROM DAY 1 TO DAY 21.
  5. TAXOTERE [Suspect]
     Active Substance: DOCETAXEL
     Indication: PROSTATE CANCER
     Dosage: ON DAY 2
     Route: 042

REACTIONS (1)
  - Interstitial lung disease [Fatal]

NARRATIVE: CASE EVENT DATE: 201010
